FAERS Safety Report 7241323-0 (Version None)
Quarter: 2011Q1

REPORT INFORMATION
  Report Type: 
  Country: None (occurrence: None)
  Receive Date: 20110119
  Receipt Date: 20110119
  Transmission Date: 20110831
  Serious: Yes (Hospitalization)
  Sender: FDA-Public Use
  Company Number: None

PATIENT
  Age: 46 Year
  Sex: Male
  Weight: 102 kg

DRUGS (1)
  1. AZATHIOPRINE [Suspect]
     Indication: WEGENER'S GRANULOMATOSIS
     Dosage: 75 MG BID PO
     Route: 048
     Dates: start: 20090310, end: 20100809

REACTIONS (2)
  - PANCREATITIS ACUTE [None]
  - REFUSAL OF TREATMENT BY PATIENT [None]
